FAERS Safety Report 20665898 (Version 1)
Quarter: 2022Q2

REPORT INFORMATION
  Report Type: Spontaneous
  Country: US (occurrence: US)
  Receive Date: 20220402
  Receipt Date: 20220402
  Transmission Date: 20220720
  Serious: No
  Sender: FDA-Public Use
  Company Number: US-TEVA-2022-US-2015616

PATIENT
  Sex: Male

DRUGS (1)
  1. QVAR REDIHALER [Suspect]
     Active Substance: BECLOMETHASONE DIPROPIONATE
     Indication: Asthma
     Dosage: DOSAGE FORM: INHALATION - AEROSOL

REACTIONS (3)
  - Asthma [Unknown]
  - Drug dose omission by device [Unknown]
  - Device delivery system issue [Unknown]
